FAERS Safety Report 5909989-2 (Version None)
Quarter: 2008Q4

REPORT INFORMATION
  Report Type: 
  Country: None (occurrence: None)
  Receive Date: 20081007
  Receipt Date: 20080918
  Transmission Date: 20090506
  Serious: Yes (Other)
  Sender: FDA-Public Use
  Company Number: GB-AMGEN-US311166

PATIENT
  Sex: Female
  Weight: 84 kg

DRUGS (4)
  1. ENBREL [Suspect]
     Indication: PSORIASIS
     Route: 058
     Dates: start: 20080723
  2. INTRAUTERINE CONTRACEPTIVE DEVICE [Concomitant]
     Indication: CONTRACEPTION
     Dosage: UNKNOWN
     Route: 050
     Dates: start: 20080923
  3. FUMARIC ACID [Concomitant]
     Indication: PSORIASIS
     Dosage: 240MG, 120MG, 120MG, FREQUENCY UNSPECIFIED
     Route: 065
     Dates: start: 20080414, end: 20080723
  4. CYCLOSPORINE [Concomitant]
     Route: 065
     Dates: start: 20080618, end: 20080809

REACTIONS (4)
  - CONVULSION [None]
  - DIZZINESS [None]
  - INCONTINENCE [None]
  - SYNCOPE [None]
